FAERS Safety Report 13456190 (Version 3)
Quarter: 2017Q2

REPORT INFORMATION
  Report Type: Report from Study
  Country: FR (occurrence: FR)
  Receive Date: 20170418
  Receipt Date: 20170505
  Transmission Date: 20170830
  Serious: Yes (Death, Hospitalization, Other)
  Sender: FDA-Public Use
  Company Number: FR-SEATTLE GENETICS-2016SGN02106

PATIENT
  Age: 54 Year
  Sex: Female
  Weight: 75 kg

DRUGS (3)
  1. BRENTUXIMAB VEDOTIN [Suspect]
     Active Substance: BRENTUXIMAB VEDOTIN
     Indication: ADULT T-CELL LYMPHOMA/LEUKAEMIA
     Dosage: 135 MG, UNK
     Route: 065
     Dates: start: 20160212, end: 20160321
  2. BENDAMUSTINE HYDROCHLORIDE. [Suspect]
     Active Substance: BENDAMUSTINE HYDROCHLORIDE
     Indication: ADULT T-CELL LYMPHOMA/LEUKAEMIA
     Dosage: 165 MG, UNK
     Route: 042
     Dates: start: 20160414, end: 20160509
  3. ETOPOSIDE. [Suspect]
     Active Substance: ETOPOSIDE
     Indication: ADULT T-CELL LYMPHOMA/LEUKAEMIA
     Dosage: 270 MG, UNK
     Route: 042
     Dates: start: 20160304, end: 20160304

REACTIONS (11)
  - Renal failure [Recovered/Resolved]
  - Multiple organ dysfunction syndrome [Fatal]
  - Candida infection [Fatal]
  - Headache [Recovered/Resolved]
  - Anaemia [Not Recovered/Not Resolved]
  - Septic shock [Fatal]
  - Escherichia sepsis [Fatal]
  - Adult T-cell lymphoma/leukaemia [Fatal]
  - Off label use [Unknown]
  - Pyrexia [Not Recovered/Not Resolved]
  - Thrombocytopenia [Not Recovered/Not Resolved]

NARRATIVE: CASE EVENT DATE: 20160212
